FAERS Safety Report 8584253-4 (Version None)
Quarter: 2012Q3

REPORT INFORMATION
  Report Type: 
  Country: None (occurrence: None)
  Receive Date: 20120810
  Receipt Date: 20120806
  Transmission Date: 20120928
  Serious: No
  Sender: FDA-Public Use
  Company Number: US-B.I. PHARMACEUTICALS,INC./RIDGEFIELD-2012-BP-17658BP

PATIENT
  Sex: Female

DRUGS (12)
  1. PLAVIX [Concomitant]
     Indication: CARDIAC DISORDER
     Dosage: 75 MG
     Route: 048
  2. DETROL [Concomitant]
     Indication: BLADDER DISORDER
     Route: 048
  3. CRESTOR [Concomitant]
     Indication: CARDIAC DISORDER
     Dosage: 10 MG
     Route: 048
  4. AMLODIPINE [Concomitant]
     Indication: CARDIAC DISORDER
  5. COREG [Concomitant]
     Indication: HYPERTENSION
     Dosage: 6.5 MG
     Route: 048
  6. COREG [Concomitant]
     Indication: CARDIAC DISORDER
  7. IMDUR [Concomitant]
     Indication: CARDIAC DISORDER
     Dosage: 40 MG
     Route: 048
  8. AMLODIPINE [Concomitant]
     Indication: HYPERTENSION
     Dosage: 5 MG
     Route: 048
  9. SPIRIVA [Suspect]
     Indication: CHRONIC OBSTRUCTIVE PULMONARY DISEASE
     Dosage: 18 MCG
     Route: 055
     Dates: start: 20120723
  10. CLARITIN [Concomitant]
     Indication: HYPERSENSITIVITY
     Dosage: 10 MG
     Route: 048
  11. PANTOPRAZOLE [Concomitant]
     Indication: GASTROOESOPHAGEAL REFLUX DISEASE
     Dosage: 40 MG
     Route: 048
  12. ASPIRIN [Concomitant]
     Indication: CARDIAC DISORDER
     Dosage: 162 MG
     Route: 048

REACTIONS (1)
  - NAUSEA [None]
